FAERS Safety Report 5736743-7 (Version None)
Quarter: 2008Q2

REPORT INFORMATION
  Report Type: 
  Country: None (occurrence: None)
  Receive Date: 20080513
  Receipt Date: 20080509
  Transmission Date: 20081010
  Serious: Yes (Hospitalization)
  Sender: FDA-Public Use
  Company Number: DK-BOEHRINGER INGELHEIM GMBH, GERMANY-2008-SW-00134DB

PATIENT
  Sex: Female

DRUGS (2)
  1. PERSANTIN [Suspect]
     Route: 048
     Dates: end: 20070801
  2. VERALOC [Suspect]
     Dates: end: 20070801

REACTIONS (2)
  - CATARACT [None]
  - POSTERIOR CAPSULE OPACIFICATION [None]
